FAERS Safety Report 8851625 (Version 2)
Quarter: 2012Q4

REPORT INFORMATION
  Report Type: 
  Country: FR (occurrence: FR)
  Receive Date: 20121022
  Receipt Date: 20121027
  Transmission Date: 20130627
  Serious: Yes (Hospitalization)
  Sender: FDA-Public Use
  Company Number: FR-US-EMD SERONO, INC.-7168080

PATIENT
  Age: 26 Year
  Sex: Female

DRUGS (6)
  1. REBIF [Suspect]
     Indication: MULTIPLE SCLEROSIS
     Route: 058
     Dates: start: 20120113
  2. IXPRIM [Concomitant]
     Indication: PAIN
  3. PYOSTACINE [Concomitant]
     Indication: TONSILLITIS
  4. MACROGOL 4000 [Concomitant]
     Indication: CONSTIPATION
  5. MOXYDAR [Concomitant]
     Indication: DYSPEPSIA
  6. CLINUTREN [Concomitant]
     Indication: INADEQUATE DIET

REACTIONS (9)
  - Multiple sclerosis relapse [Unknown]
  - Urinary incontinence [Recovering/Resolving]
  - Faecal incontinence [Recovering/Resolving]
  - Constipation [Recovering/Resolving]
  - Sensory loss [Recovering/Resolving]
  - Vertigo [Unknown]
  - Dysphagia [Unknown]
  - Eating disorder [Unknown]
  - Tonsillitis [Unknown]
